FAERS Safety Report 8515174-0 (Version None)
Quarter: 2012Q3

REPORT INFORMATION
  Report Type: 
  Country: None (occurrence: None)
  Receive Date: 20120717
  Receipt Date: 20120709
  Transmission Date: 20120928
  Serious: Yes (Hospitalization)
  Sender: FDA-Public Use
  Company Number: US-GLAXOSMITHKLINE-A0984614A

PATIENT
  Age: 58 Year
  Sex: Male

DRUGS (5)
  1. RAMIPRIL [Concomitant]
  2. ALTACE [Concomitant]
  3. METFORMIN HYDROCHLORIDE [Concomitant]
  4. AVANDAMET [Suspect]
     Indication: TYPE 2 DIABETES MELLITUS
     Route: 048
  5. AVANDIA [Suspect]
     Indication: TYPE 2 DIABETES MELLITUS
     Route: 048
     Dates: start: 20041101

REACTIONS (2)
  - MYOCARDIAL INFARCTION [None]
  - CORONARY ARTERY BYPASS [None]
